FAERS Safety Report 4633259-6 (Version None)
Quarter: 2005Q2

REPORT INFORMATION
  Report Type: 
  Country: None (occurrence: None)
  Receive Date: 20050408
  Receipt Date: 20050131
  Transmission Date: 20051028
  Serious: Yes (Life-Threatening, Hospitalization, Disabling)
  Sender: FDA-Public Use
  Company Number: 2005RR-00441

PATIENT
  Age: 75 Year
  Sex: Female

DRUGS (3)
  1. ASPIRIN [Suspect]
     Indication: MYOCARDIAL ISCHAEMIA
     Dosage: 75 MG, QD, ORAL
     Route: 048
  2. GINKGO BILOBA () [Suspect]
     Indication: MEMORY IMPAIRMENT
     Dosage: 60 MG, TID, ORAL
     Route: 048
     Dates: end: 20041204
  3. ATORVASTATIN CALCIUM [Concomitant]

REACTIONS (2)
  - DRUG INTERACTION [None]
  - SUBARACHNOID HAEMORRHAGE [None]
